FAERS Safety Report 6647191-X (Version None)
Quarter: 2010Q1

REPORT INFORMATION
  Report Type: 
  Country: None (occurrence: None)
  Receive Date: 20100322
  Receipt Date: 20100322
  Transmission Date: 20100710
  Serious: Yes (Hospitalization)
  Sender: FDA-Public Use
  Company Number: None

PATIENT
  Sex: Male
  Weight: 81.64 kg

DRUGS (14)
  1. CYCLOPHOSPHAMIDE [Suspect]
     Dosage: 1960 MG
  2. CYTARABINE [Suspect]
     Dosage: 1176 MG
  3. DEXAMETHASONE [Suspect]
     Dosage: 304 MG
  4. DOXORUBICIN HCL [Suspect]
     Dosage: 150 MG
  5. METHOTREXATE [Suspect]
     Dosage: 45 MG
  6. PEG-L-ASPARAGINASE (K-H) [Suspect]
     Dosage: 5000 IU
  7. THIOGUANINE [Suspect]
     Dosage: 1400 MG
  8. VINCRISTINE SULFATE [Suspect]
     Dosage: 4 MG
  9. BACTRIM DS [Concomitant]
  10. DILAUDID [Concomitant]
  11. KYTRIL [Concomitant]
  12. LEVAQUIN [Concomitant]
  13. REGULAR INSULIN - PRN [Concomitant]
  14. URSODIOL [Concomitant]

REACTIONS (4)
  - CHILLS [None]
  - FATIGUE [None]
  - GINGIVAL BLEEDING [None]
  - PYREXIA [None]
